FAERS Safety Report 19165260 (Version 1)
Quarter: 2021Q2

REPORT INFORMATION
  Report Type: Other
  Country: US (occurrence: US)
  Receive Date: 20210421
  Receipt Date: 20210421
  Transmission Date: 20210717
  Serious: Yes (Hospitalization, Other)
  Sender: FDA-Public Use
  Company Number: US-KALEO, INC.-2021KL000046

PATIENT
  Age: 29 Year
  Sex: Male

DRUGS (2)
  1. EVZIO [Suspect]
     Active Substance: NALOXONE HYDROCHLORIDE
     Indication: TOXICITY TO VARIOUS AGENTS
  2. EVZIO [Suspect]
     Active Substance: NALOXONE HYDROCHLORIDE
     Dosage: REPEATED DOSES

REACTIONS (4)
  - Dyspnoea [Recovered/Resolved]
  - Acute pulmonary oedema [Recovered/Resolved]
  - Mental status changes [Recovered/Resolved]
  - Hypoxia [Recovered/Resolved]
